FAERS Safety Report 7992764-5 (Version None)
Quarter: 2011Q4

REPORT INFORMATION
  Report Type: 
  Country: None (occurrence: None)
  Receive Date: 20111219
  Receipt Date: 20110330
  Transmission Date: 20120403
  Serious: Yes (Hospitalization)
  Sender: FDA-Public Use
  Company Number: US-ASTRAZENECA-2011SE18226

PATIENT
  Age: 64 Year
  Sex: Male

DRUGS (7)
  1. HYDROCHLOROTHIAZIDE [Concomitant]
     Route: 065
  2. PEPCID [Concomitant]
     Route: 065
  3. CRESTOR [Suspect]
     Route: 048
     Dates: start: 20110101
  4. CLONIDINE [Concomitant]
     Route: 065
  5. LABETALOL HCL [Concomitant]
     Route: 065
  6. METFORMIN HCL [Concomitant]
     Route: 065
  7. ASPIRIN [Concomitant]
     Route: 065

REACTIONS (5)
  - SPEECH DISORDER [None]
  - DYSPNOEA [None]
  - SWOLLEN TONGUE [None]
  - TONGUE NEOPLASM [None]
  - ANGIOEDEMA [None]
